FAERS Safety Report 8119206-3 (Version None)
Quarter: 2012Q1

REPORT INFORMATION
  Report Type: 
  Country: None (occurrence: None)
  Receive Date: 20120207
  Receipt Date: 20120123
  Transmission Date: 20120608
  Serious: Yes (Other)
  Sender: FDA-Public Use
  Company Number: FR-ROCHE-1033400

PATIENT
  Age: 61 Year
  Sex: Male

DRUGS (7)
  1. METHOTREXATE [Suspect]
     Indication: ACUTE PROMYELOCYTIC LEUKAEMIA
     Dates: start: 20080101
  2. CYTARABINE [Concomitant]
     Indication: ACUTE MYELOID LEUKAEMIA
     Dates: end: 20071001
  3. IMATINIB MESYLATE [Concomitant]
  4. MERCAPTOPURINE [Suspect]
     Indication: ACUTE PROMYELOCYTIC LEUKAEMIA
     Dates: start: 20080101
  5. IDARUBICIN HCL [Concomitant]
     Indication: ACUTE MYELOID LEUKAEMIA
     Dates: end: 20071001
  6. TRETINOIN [Suspect]
     Indication: ACUTE PROMYELOCYTIC LEUKAEMIA
     Dates: end: 20071001
  7. TRETINOIN [Suspect]
     Dates: start: 20080101

REACTIONS (2)
  - HAEMATOPOIETIC NEOPLASM [None]
  - EOSINOPHILIA [None]
